FAERS Safety Report 9787234 (Version 1)
Quarter: 2013Q4

REPORT INFORMATION
  Report Type: Report from Study
  Country: US (occurrence: US)
  Receive Date: 20131229
  Receipt Date: 20131229
  Transmission Date: 20140711
  Serious: Yes (Other)
  Sender: FDA-Public Use
  Company Number: US-ROCHE-1324917

PATIENT
  Sex: Male
  Weight: 35.8 kg

DRUGS (6)
  1. NUTROPIN AQ [Suspect]
     Indication: GROWTH HORMONE DEFICIENCY
     Route: 058
     Dates: end: 20130919
  2. NUTROPIN AQ [Suspect]
     Route: 058
     Dates: start: 20130919
  3. VYVANSE [Concomitant]
     Route: 048
  4. ANASTROZOLE [Concomitant]
     Route: 048
  5. FLUOXETINE [Concomitant]
     Dosage: 20 MG/5 ML SOLUTION
     Route: 065
  6. LEVOXYL [Concomitant]
     Route: 048

REACTIONS (2)
  - Arthralgia [Unknown]
  - Joint stiffness [Unknown]
